FAERS Safety Report 8226981-6 (Version None)
Quarter: 2012Q1

REPORT INFORMATION
  Report Type: 
  Country: None (occurrence: None)
  Receive Date: 20120322
  Receipt Date: 20120312
  Transmission Date: 20120608
  Serious: No
  Sender: FDA-Public Use
  Company Number: US-BAYER-2012-027341

PATIENT
  Age: 53 Year
  Sex: Male

DRUGS (1)
  1. LEUKINE [Suspect]
     Indication: IMMUNE SYSTEM DISORDER
     Dosage: UNK
     Dates: start: 20090101, end: 20090101

REACTIONS (2)
  - ABDOMINAL DISCOMFORT [None]
  - GASTROOESOPHAGEAL REFLUX DISEASE [None]
